FAERS Safety Report 10070438 (Version 1)
Quarter: 2014Q2

REPORT INFORMATION
  Report Type: Report from Study
  Country: TW (occurrence: TW)
  Receive Date: 20140410
  Receipt Date: 20140410
  Transmission Date: 20141212
  Serious: No
  Sender: FDA-Public Use
  Company Number: PHHY2014TW042778

PATIENT
  Age: 60 Year
  Sex: Female

DRUGS (38)
  1. AMN107 [Suspect]
     Dates: start: 20090527
  2. ACETAMINOPHEN [Concomitant]
     Indication: PAIN
     Dates: end: 20110216
  3. ACETAMINOPHEN [Concomitant]
     Indication: PYREXIA
     Dates: start: 20120516, end: 20120521
  4. ACETYLCYSTEIN [Concomitant]
     Indication: PNEUMONIA
     Dosage: UNK
     Dates: start: 20120516, end: 20120615
  5. ACETYLCYSTEIN [Concomitant]
     Indication: COUGH
  6. ACETYLCYSTEIN [Concomitant]
     Indication: PRODUCTIVE COUGH
  7. AMOXICILLIN [Concomitant]
     Indication: PNEUMONIA
     Dates: start: 20120518, end: 20120523
  8. BENZONATATE [Concomitant]
     Indication: COUGH
     Dates: start: 20120516, end: 20120521
  9. CICLOPIROX OLAMINE [Concomitant]
     Indication: RASH
     Dates: start: 20110413, end: 20110511
  10. CIMETIDINE [Concomitant]
     Indication: PEPTIC ULCER
     Dates: start: 20100210, end: 20120328
  11. DEXTROMETHORPHAN [Concomitant]
     Indication: COUGH
     Dates: start: 20120517, end: 20120615
  12. ETOFENAMATE [Concomitant]
     Indication: PAIN
     Dates: start: 20110511, end: 20110615
  13. FAMOTIDINE [Concomitant]
     Indication: PEPTIC ULCER
     Dates: start: 20120627
  14. FOSTER                             /06206901/ [Concomitant]
     Indication: ASTHMA
     Dates: start: 20120601, end: 20120627
  15. GLIPIZID [Concomitant]
     Indication: DIABETES MELLITUS
     Dosage: UNK
     Dates: start: 20120502
  16. IBUPROFEN [Concomitant]
     Indication: PAIN
     Dates: start: 20110615
  17. IBUPROFEN [Concomitant]
     Indication: ARTHRALGIA
     Dates: start: 20110216, end: 20110413
  18. LEVOCETIRIZINE [Concomitant]
     Indication: RASH
     Dates: start: 20101027, end: 20110907
  19. LEVOCETIRIZINE [Concomitant]
     Indication: PRURITUS
     Dates: start: 20120328, end: 20120919
  20. LEVOFLOXACIN [Concomitant]
     Indication: ASTHMA
     Dates: start: 20120522, end: 20120531
  21. LORATADINE [Concomitant]
     Indication: ASTHMA
     Dates: start: 20120519, end: 20120522
  22. MAGNESIUM OXIDE [Concomitant]
     Indication: CONSTIPATION
     Dates: start: 20080618
  23. METFORMIN [Concomitant]
     Indication: DIABETES MELLITUS
     Dosage: UNK
     Dates: start: 20090624
  24. METHOCARBAMOL [Concomitant]
     Indication: NUCHAL RIGIDITY
     Dates: start: 20120725
  25. METHYLPREDNISOLONE [Concomitant]
     Indication: ASTHMA
     Dates: start: 20120516, end: 20120523
  26. MONTELUKAST SODIUM [Concomitant]
     Indication: ASTHMA
     Dates: start: 20120601, end: 20120615
  27. MOXIFLOXACIN [Concomitant]
     Indication: PNEUMONIA
     Dates: start: 20120516, end: 20120521
  28. NEO-CORTISONE [Concomitant]
     Indication: PRURITUS
     Dates: start: 20081008, end: 20120424
  29. PREDNISOLONE [Concomitant]
     Indication: OSTEOPOROSIS
     Dates: start: 20101027, end: 20110330
  30. PREDNISOLONE [Concomitant]
     Dates: start: 20110413
  31. THEOPHYLLINE [Concomitant]
     Indication: ASTHMA
     Dates: start: 20120519, end: 20120615
  32. THEOPHYLLINE [Concomitant]
     Indication: PROPHYLAXIS
  33. TRAMADOL [Concomitant]
     Indication: PAIN
     Dates: start: 20100310, end: 20110316
  34. TRANEXAMIC ACID [Concomitant]
     Indication: HAEMOPTYSIS
     Dates: start: 20120518, end: 20120531
  35. TRANEXAMIC ACID [Concomitant]
     Indication: PROPHYLAXIS
  36. ULTRACET [Concomitant]
     Indication: PAIN
     Dates: start: 20110316, end: 20110608
  37. ULTRACET [Concomitant]
     Dosage: UNK
     Dates: start: 20120328
  38. ZOLPIDEM [Concomitant]
     Indication: INSOMNIA
     Dates: start: 20100602, end: 20110907

REACTIONS (1)
  - Blood pressure diastolic decreased [Unknown]
